FAERS Safety Report 9004646 (Version 1)
Quarter: 2013Q1

REPORT INFORMATION
  Report Type: Spontaneous
  Country: US (occurrence: None)
  Receive Date: 20130103
  Receipt Date: 20130103
  Transmission Date: 20140127
  Serious: Yes (Congenital Anomaly)
  Sender: FDA-Public Use
  Company Number: None

PATIENT
  Sex: Male
  Weight: 2.1 kg

DRUGS (1)
  1. LEVETIRACETAM [Suspect]
     Indication: CONVULSION
     Dosage: 2000 MG BID PO
     Route: 048
     Dates: start: 20120101, end: 20121231

REACTIONS (2)
  - Maternal drugs affecting foetus [None]
  - Congenital musculoskeletal anomaly [None]
